FAERS Safety Report 6807270-0 (Version None)
Quarter: 2010Q2

REPORT INFORMATION
  Report Type: 
  Country: None (occurrence: None)
  Receive Date: 20100629
  Receipt Date: 20080731
  Transmission Date: 20101027
  Serious: Yes (Other)
  Sender: FDA-Public Use
  Company Number: US-PFIZER INC-2008064387

PATIENT
  Sex: Male
  Weight: 90.7 kg

DRUGS (2)
  1. VIAGRA [Suspect]
     Indication: PENIS DISORDER
     Dates: start: 19980101
  2. NOVOLOG [Concomitant]

REACTIONS (4)
  - BLOOD GLUCOSE INCREASED [None]
  - COUNTERFEIT DRUG ADMINISTERED [None]
  - FEELING ABNORMAL [None]
  - PRODUCT TASTE ABNORMAL [None]
